FAERS Safety Report 5606142-7 (Version None)
Quarter: 2008Q1

REPORT INFORMATION
  Report Type: 
  Country: None (occurrence: None)
  Receive Date: 20080129
  Receipt Date: 20070320
  Transmission Date: 20080703
  Serious: No
  Sender: FDA-Public Use
  Company Number: A0643908A

PATIENT
  Age: 76 Year
  Sex: Female

DRUGS (2)
  1. MEPRON [Suspect]
     Indication: DRUG USE FOR UNKNOWN INDICATION
     Dosage: 1500CC AS REQUIRED
     Route: 048
     Dates: start: 20070301
  2. MULTIPLE MEDICATIONS [Concomitant]

REACTIONS (2)
  - DYSGEUSIA [None]
  - NAUSEA [None]
